FAERS Safety Report 9815521 (Version 2)
Quarter: 2014Q1

REPORT INFORMATION
  Report Type: Report from Study
  Country: CA (occurrence: CA)
  Receive Date: 20140114
  Receipt Date: 20140114
  Transmission Date: 20141002
  Serious: Yes (Other)
  Sender: FDA-Public Use
  Company Number: CA-JNJFOC-20131215053

PATIENT
  Sex: Male
  Weight: 53.98 kg

DRUGS (1)
  1. REMICADE [Suspect]
     Indication: COLITIS ULCERATIVE
     Route: 042
     Dates: start: 20121113, end: 20140107

REACTIONS (2)
  - Surgery [Unknown]
  - Drug ineffective [Unknown]
